FAERS Safety Report 14295196 (Version 7)
Quarter: 2018Q2

REPORT INFORMATION
  Report Type: Spontaneous
  Country: JP (occurrence: JP)
  Receive Date: 20171218
  Receipt Date: 20180603
  Transmission Date: 20180711
  Serious: Yes (Hospitalization, Other)
  Sender: FDA-Public Use
  Company Number: JP-BRISTOL-MYERS SQUIBB COMPANY-BMS-2017-108282

PATIENT
  Age: 82 Year
  Sex: Female

DRUGS (1)
  1. OPDIVO [Suspect]
     Active Substance: NIVOLUMAB
     Indication: MALIGNANT MELANOMA
     Dosage: 3 MG/KG, UNK
     Route: 041
     Dates: start: 20171110

REACTIONS (6)
  - Hypothyroidism [Recovering/Resolving]
  - Dizziness [Recovered/Resolved]
  - Rash [Recovering/Resolving]
  - Deafness [Recovering/Resolving]
  - Pruritus [Recovering/Resolving]
  - Leukoderma [Not Recovered/Not Resolved]

NARRATIVE: CASE EVENT DATE: 20171113
